FAERS Safety Report 11509233 (Version 1)
Quarter: 2015Q3

REPORT INFORMATION
  Report Type: Spontaneous
  Country: US (occurrence: US)
  Receive Date: 20150915
  Receipt Date: 20150915
  Transmission Date: 20151125
  Serious: Yes (Other)
  Sender: FDA-Public Use
  Company Number: US-PFIZER INC-2015307055

PATIENT
  Sex: Female

DRUGS (1)
  1. XANAX [Suspect]
     Active Substance: ALPRAZOLAM
     Dosage: 1 MG, UNK

REACTIONS (6)
  - Swelling face [Unknown]
  - Panic attack [Unknown]
  - Vomiting [Unknown]
  - Rash macular [Unknown]
  - Asthenia [Unknown]
  - Dyspnoea [Unknown]
